FAERS Safety Report 6557919-5 (Version None)
Quarter: 2010Q1

REPORT INFORMATION
  Report Type: 
  Country: None (occurrence: None)
  Receive Date: 20100129
  Receipt Date: 20100118
  Transmission Date: 20100710
  Serious: Yes (Hospitalization)
  Sender: FDA-Public Use
  Company Number: IT-ELI_LILLY_AND_COMPANY-IT201001003413

PATIENT
  Sex: Female

DRUGS (2)
  1. ZYPREXA [Suspect]
     Indication: ACUTE PSYCHOSIS
     Dosage: 10 MG, DAILY (1/D)
     Route: 048
     Dates: start: 20091203, end: 20091205
  2. LORAZEPAM [Concomitant]
     Dosage: 4.5 MG, UNKNOWN
     Route: 048

REACTIONS (6)
  - BLOOD CREATINE PHOSPHOKINASE INCREASED [None]
  - HYPERPYREXIA [None]
  - HYPERTENSION [None]
  - LEUKOCYTOSIS [None]
  - SOMNOLENCE [None]
  - TACHYCARDIA [None]
